FAERS Safety Report 23357605 (Version 1)
Quarter: 2024Q1

REPORT INFORMATION
  Report Type: Spontaneous
  Country: IT (occurrence: IT)
  Receive Date: 20240102
  Receipt Date: 20240102
  Transmission Date: 20240409
  Serious: Yes (Hospitalization, Other)
  Sender: FDA-Public Use
  Company Number: None

PATIENT
  Age: 41 Year
  Sex: Male

DRUGS (13)
  1. VALIUM [Suspect]
     Active Substance: DIAZEPAM
     Indication: Product used for unknown indication
     Dosage: DOSAGGIO: 10?UNITA DI MISURA: UNITA POSOLOGICA?FREQUENZA SOMMINISTRAZIONE: TOTALE?VIA SOMMINISTRA...
     Route: 050
     Dates: start: 20231204, end: 20231204
  2. MIDAZOLAM [Suspect]
     Active Substance: MIDAZOLAM
     Indication: Product used for unknown indication
     Dosage: DOSAGGIO: 6?UNITA DI MISURA: UNITA POSOLOGICA?FREQUENZA SOMMINISTRAZIONE: TOTALE?VIA SOMMINISTRAZ...
     Route: 050
     Dates: start: 20231204, end: 20231204
  3. MORPHINE HYDROCHLORIDE [Suspect]
     Active Substance: MORPHINE HYDROCHLORIDE
     Indication: Product used for unknown indication
     Dosage: FREQUENZA SOMMINISTRAZIONE: TOTALE?VIA SOMMINISTRAZIONE: INTRAMUSCOLARE
     Route: 050
     Dates: start: 20231204, end: 20231204
  4. CHLORPROMAZINE [Suspect]
     Active Substance: CHLORPROMAZINE
     Indication: Product used for unknown indication
     Dosage: DOSAGGIO: 12?UNITA DI MISURA: UNITA POSOLOGICA?FREQUENZA SOMMINISTRAZIONE: TOTALE?VIA SOMMINISTRA...
     Route: 050
     Dates: start: 20231204, end: 20231204
  5. BROMAZEPAM [Suspect]
     Active Substance: BROMAZEPAM
     Indication: Product used for unknown indication
     Dosage: DOSAGGIO: 40?UNITA DI MISURA: MILLILITRI?FREQUENZA SOMMINISTRAZIONE: TOTALE?VIA SOMMINISTRAZIONE:...
     Route: 050
     Dates: start: 20231204, end: 20231204
  6. EN [Suspect]
     Active Substance: DELORAZEPAM
     Indication: Product used for unknown indication
     Dosage: DOSAGGIO: 2?UNITA DI MISURA: UNITA POSOLOGICA?FREQUENZA SOMMINISTRAZIONE: TOTALE?VIA SOMMINISTRAZ...
     Route: 050
     Dates: start: 20231204
  7. TAVOR [Concomitant]
     Indication: Pain
  8. LYRICA [Concomitant]
     Active Substance: PREGABALIN
     Indication: Generalised anxiety disorder
  9. MORPHINE SULFATE [Concomitant]
     Active Substance: MORPHINE SULFATE
     Indication: Pain
  10. ACETAMINOPHEN\OXYCODONE HYDROCHLORIDE [Concomitant]
     Active Substance: ACETAMINOPHEN\OXYCODONE HYDROCHLORIDE
     Indication: Pain
  11. FENTANYL CITRATE [Concomitant]
     Active Substance: FENTANYL CITRATE
     Indication: Pain
  12. LASIX [Concomitant]
     Active Substance: FUROSEMIDE
     Indication: Hypertension
  13. ARIXTRA [Concomitant]
     Active Substance: FONDAPARINUX SODIUM
     Indication: Thrombosis prophylaxis

REACTIONS (2)
  - Drug abuse [Unknown]
  - Dyspraxia [Unknown]

NARRATIVE: CASE EVENT DATE: 20231204
